FAERS Safety Report 9411896 (Version 1)
Quarter: 2013Q3

REPORT INFORMATION
  Report Type: Spontaneous
  Country: US (occurrence: None)
  Receive Date: 20130719
  Receipt Date: 20130719
  Transmission Date: 20140515
  Serious: Yes (Other)
  Sender: FDA-Public Use
  Company Number: None

PATIENT
  Age: 54 None
  Sex: Male

DRUGS (1)
  1. TECFIDERA [Suspect]
     Dosage: 120MG BID X 1 WEK THEN 240 MG BID
     Route: 048
     Dates: start: 20130605

REACTIONS (3)
  - Flushing [None]
  - Nausea [None]
  - Hepatic enzyme increased [None]
